FAERS Safety Report 7036047-9 (Version None)
Quarter: 2010Q4

REPORT INFORMATION
  Report Type: 
  Country: None (occurrence: None)
  Receive Date: 20101008
  Receipt Date: 20100930
  Transmission Date: 20110411
  Serious: Yes (Hospitalization)
  Sender: FDA-Public Use
  Company Number: IT-GENENTECH-307114

PATIENT
  Sex: Female

DRUGS (1)
  1. MABTHERA [Suspect]
     Indication: CHRONIC LYMPHOCYTIC LEUKAEMIA
     Dosage: 100 MG, PRN
     Route: 042
     Dates: start: 20100401, end: 20100401

REACTIONS (3)
  - ALANINE AMINOTRANSFERASE INCREASED [None]
  - NAUSEA [None]
  - VOMITING [None]
